FAERS Safety Report 23634085 (Version 2)
Quarter: 2024Q2

REPORT INFORMATION
  Report Type: Spontaneous
  Country: SK (occurrence: SK)
  Receive Date: 20240314
  Receipt Date: 20240403
  Transmission Date: 20240716
  Serious: Yes (Death, Hospitalization)
  Sender: FDA-Public Use
  Company Number: SK-ELI_LILLY_AND_COMPANY-SK202403005467

PATIENT
  Age: 45 Year
  Sex: Male
  Weight: 75 kg

DRUGS (8)
  1. TALTZ [Suspect]
     Active Substance: IXEKIZUMAB
     Indication: Psoriasis
     Dosage: 80 MG, OTHER, EVERY 4 WEEKS
     Route: 058
     Dates: start: 20200622
  2. TISERCIN [LEVOMEPROMAZINE] [Concomitant]
     Indication: Product used for unknown indication
     Dosage: 25 MG, OTHER, IN THE EVENING
  3. OZZION [Concomitant]
     Indication: Product used for unknown indication
     Dosage: 40 MG
  4. RIFAXIMIN [Concomitant]
     Active Substance: RIFAXIMIN
     Indication: Product used for unknown indication
     Dosage: 200 MG, OTHER (3X2TBL)
  5. THIAMINE [Concomitant]
     Active Substance: THIAMINE
     Indication: Product used for unknown indication
     Dosage: 50 MG, OTHER, (2X1TBL)
  6. PYRIDOXINE [Concomitant]
     Active Substance: PYRIDOXINE
     Indication: Product used for unknown indication
     Dosage: 20 MG, OTHER, (2X1 TBL)
  7. DIETARY SUPPLEMENT\HERBALS\MILK THISTLE [Concomitant]
     Active Substance: MILK THISTLE
     Indication: Product used for unknown indication
     Dosage: 150 MG, OTHER, (3X1 TBL)
  8. MELATONIN [Concomitant]
     Active Substance: MELATONIN
     Indication: Product used for unknown indication
     Dosage: 1 MG, OTHER, (5TBL IN THE EVENING)

REACTIONS (2)
  - Cardiac arrest [Fatal]
  - Oesophageal varices haemorrhage [Unknown]

NARRATIVE: CASE EVENT DATE: 20231225
